FAERS Safety Report 11365919 (Version 1)
Quarter: 2015Q3

REPORT INFORMATION
  Report Type: Spontaneous
  Country: US (occurrence: US)
  Receive Date: 20150811
  Receipt Date: 20150811
  Transmission Date: 20151125
  Serious: No
  Sender: FDA-Public Use
  Company Number: US-BAYER-2015-390518

PATIENT
  Sex: Female

DRUGS (1)
  1. AVELOX [Suspect]
     Active Substance: MOXIFLOXACIN HYDROCHLORIDE
     Dosage: UNK
     Dates: start: 201009

REACTIONS (4)
  - Neuropathy peripheral [Not Recovered/Not Resolved]
  - Injury [Not Recovered/Not Resolved]
  - Pain [None]
  - Emotional distress [Not Recovered/Not Resolved]
